FAERS Safety Report 6939389-8 (Version None)
Quarter: 2010Q3

REPORT INFORMATION
  Report Type: 
  Country: None (occurrence: None)
  Receive Date: 20100819
  Receipt Date: 20100810
  Transmission Date: 20110219
  Serious: Yes (Other)
  Sender: FDA-Public Use
  Company Number: 2010SP039907

PATIENT
  Sex: Male

DRUGS (2)
  1. CLARINEX [Suspect]
     Indication: RHINITIS ALLERGIC
     Dosage: 5 MG; PO
     Route: 048
     Dates: start: 20100601, end: 20100715
  2. PROVIGIL [Concomitant]

REACTIONS (2)
  - MUSCULOSKELETAL STIFFNESS [None]
  - MYALGIA [None]
